FAERS Safety Report 9916945 (Version 1)
Quarter: 2014Q1

REPORT INFORMATION
  Report Type: Spontaneous
  Country: US (occurrence: US)
  Receive Date: 20140221
  Receipt Date: 20140221
  Transmission Date: 20141002
  Serious: Yes (Hospitalization)
  Sender: FDA-Public Use
  Company Number: US-MERZ PHARMACEUTICALS, LLC DRUG SAFETY-14MRZ-00094

PATIENT
  Age: 57 Year
  Sex: Female
  Weight: 68.1 kg

DRUGS (8)
  1. XEOMIN [Suspect]
     Indication: BLEPHAROSPASM
     Dosage: 40 UNITS
     Route: 030
     Dates: start: 20131130
  2. TRAMADOL [Concomitant]
  3. ATIVAN [Concomitant]
  4. METOPROLOL [Concomitant]
  5. DOXYCYCLINE [Concomitant]
  6. BACLOFEN [Concomitant]
  7. PREDNISONE [Concomitant]
  8. LIPITOR [Concomitant]

REACTIONS (2)
  - Myocardial infarction [Recovered/Resolved]
  - Drug ineffective [Not Recovered/Not Resolved]
